FAERS Safety Report 20732867 (Version 1)
Quarter: 2022Q2

REPORT INFORMATION
  Report Type: Spontaneous
  Country: CN (occurrence: CN)
  Receive Date: 20220420
  Receipt Date: 20220420
  Transmission Date: 20220721
  Serious: Yes (Hospitalization)
  Sender: FDA-Public Use
  Company Number: CN-BAXTER-2022BAX008721

PATIENT
  Age: 6 Year
  Sex: Female

DRUGS (3)
  1. CYCLOPHOSPHAMIDE [Suspect]
     Active Substance: CYCLOPHOSPHAMIDE
     Indication: Acute lymphocytic leukaemia
     Dosage: 4:1 GLUCOSE SODIUM CHLORIDE (250 ML) + CYCLOPHOSPHAMIDE (0.87 G)
     Route: 041
     Dates: start: 20220310, end: 20220310
  2. DEXTROSE\SODIUM CHLORIDE [Suspect]
     Active Substance: DEXTROSE\SODIUM CHLORIDE
     Indication: Medication dilution
     Dosage: 4:1 GLUCOSE SODIUM CHLORIDE (250 ML) + CYCLOPHOSPHAMIDE (0.87 G)
     Route: 041
     Dates: start: 20220310, end: 20220310
  3. MERCAPTOPURINE [Suspect]
     Active Substance: MERCAPTOPURINE
     Indication: Acute lymphocytic leukaemia
     Dosage: DOSAGE FORM: TABLETS, QN
     Route: 048
     Dates: start: 20220310, end: 20220323

REACTIONS (1)
  - Myelosuppression [Recovering/Resolving]

NARRATIVE: CASE EVENT DATE: 20220322
